FAERS Safety Report 15215084 (Version 2)
Quarter: 2018Q3

REPORT INFORMATION
  Report Type: Spontaneous
  Country: NL (occurrence: NL)
  Receive Date: 20180730
  Receipt Date: 20180806
  Transmission Date: 20181010
  Serious: Yes (Hospitalization, Other)
  Sender: FDA-Public Use
  Company Number: NL-ELI_LILLY_AND_COMPANY-NL201807012187

PATIENT
  Age: 61 Year
  Sex: Male

DRUGS (2)
  1. ZYPADHERA [Suspect]
     Active Substance: OLANZAPINE PAMOATE
     Indication: PRODUCT USED FOR UNKNOWN INDICATION
     Dosage: 300 MG, EVERY FOUR WEEKS
     Route: 030
     Dates: start: 20170713
  2. ZYPADHERA [Suspect]
     Active Substance: OLANZAPINE PAMOATE
     Dosage: 300 MG, EVERY THREE WEEKS
     Route: 030

REACTIONS (15)
  - Disorganised speech [Unknown]
  - Restlessness [Unknown]
  - Sedation [Unknown]
  - Paraesthesia [Unknown]
  - Balance disorder [Unknown]
  - Chest discomfort [Unknown]
  - Post-injection delirium sedation syndrome [Unknown]
  - Dysarthria [Unknown]
  - Hypertension [Unknown]
  - Somnolence [Unknown]
  - Feeling abnormal [Unknown]
  - Heart rate increased [Unknown]
  - Dizziness [Unknown]
  - Confusional state [Unknown]
  - Body temperature increased [Unknown]

NARRATIVE: CASE EVENT DATE: 20180713
